FAERS Safety Report 8678957 (Version 2)
Quarter: 2013Q4

REPORT INFORMATION
  Report Type: Spontaneous
  Country: RO (occurrence: RO)
  Receive Date: 20120723
  Receipt Date: 20131105
  Transmission Date: 20140711
  Serious: Yes (Other)
  Sender: FDA-Public Use
  Company Number: RO-009507513-1207ROM005591

PATIENT
  Sex: Female

DRUGS (1)
  1. FOSAVANCE [Suspect]
     Dosage: UNK
     Route: 048
     Dates: start: 201205

REACTIONS (1)
  - Inflammatory bowel disease [Recovering/Resolving]
